FAERS Safety Report 14174266 (Version 3)
Quarter: 2018Q1

REPORT INFORMATION
  Report Type: Spontaneous
  Country: FR (occurrence: FR)
  Receive Date: 20171109
  Receipt Date: 20180305
  Transmission Date: 20180508
  Serious: Yes (Disabling)
  Sender: FDA-Public Use
  Company Number: FR-BEH-2017085017

PATIENT
  Age: 38 Year
  Sex: Female

DRUGS (9)
  1. CLAIRYG [Suspect]
     Active Substance: HUMAN IMMUNOGLOBULIN G
     Dosage: 30 G, QMT
     Route: 041
     Dates: start: 20170629, end: 20170629
  2. CLAIRYG [Suspect]
     Active Substance: HUMAN IMMUNOGLOBULIN G
     Indication: IMMUNE SYSTEM DISORDER
     Dosage: 30 G, QMT
     Route: 041
     Dates: start: 20161215, end: 20161215
  3. CLAIRYG [Suspect]
     Active Substance: HUMAN IMMUNOGLOBULIN G
     Dosage: 30 G, QMT
     Route: 041
     Dates: start: 20170112, end: 20170112
  4. CLAIRYG [Suspect]
     Active Substance: HUMAN IMMUNOGLOBULIN G
     Dosage: 30 G, QMT
     Route: 041
     Dates: start: 20170210, end: 20170210
  5. CLAIRYG [Suspect]
     Active Substance: HUMAN IMMUNOGLOBULIN G
     Dosage: 30 G, QMT
     Route: 041
     Dates: start: 20170406, end: 20170406
  6. CLAIRYG [Suspect]
     Active Substance: HUMAN IMMUNOGLOBULIN G
     Dosage: 30 G, QMT
     Route: 041
     Dates: start: 20170504, end: 20170504
  7. PRIVIGEN [Suspect]
     Active Substance: HUMAN IMMUNOGLOBULIN G
     Indication: IMMUNE SYSTEM DISORDER
     Dosage: 30 G, QMT
     Route: 042
     Dates: start: 20170406, end: 20170406
  8. CLAIRYG [Suspect]
     Active Substance: HUMAN IMMUNOGLOBULIN G
     Dosage: 30 G, QMT
     Route: 041
     Dates: start: 20170309, end: 20170309
  9. CLAIRYG [Suspect]
     Active Substance: HUMAN IMMUNOGLOBULIN G
     Dosage: 30 G, QMT
     Route: 041
     Dates: start: 20170602, end: 20170602

REACTIONS (6)
  - Optic neuritis [Recovering/Resolving]
  - Vision blurred [Recovering/Resolving]
  - Myalgia [Unknown]
  - Small fibre neuropathy [Unknown]
  - Pain in extremity [Unknown]
  - Muscular weakness [Unknown]

NARRATIVE: CASE EVENT DATE: 201705
